FAERS Safety Report 5709193-7 (Version None)
Quarter: 2008Q2

REPORT INFORMATION
  Report Type: 
  Country: None (occurrence: None)
  Receive Date: 20080418
  Receipt Date: 20080408
  Transmission Date: 20081010
  Serious: Yes (Hospitalization)
  Sender: FDA-Public Use
  Company Number: US-JNJFOC-20080402389

PATIENT
  Sex: Male
  Weight: 49 kg

DRUGS (6)
  1. REMICADE [Suspect]
     Route: 042
  2. REMICADE [Suspect]
     Indication: FISTULA
     Route: 042
  3. 5 ASA [Concomitant]
  4. METRONIDAZOLE [Concomitant]
  5. CIPRO [Concomitant]
  6. MIRALAX [Concomitant]

REACTIONS (2)
  - ANAL FISTULA [None]
  - PERIANAL ABSCESS [None]
